FAERS Safety Report 9336379 (Version 2)
Quarter: 2013Q3

REPORT INFORMATION
  Report Type: Spontaneous
  Country: US (occurrence: US)
  Receive Date: 20130607
  Receipt Date: 20130711
  Transmission Date: 20140515
  Serious: No
  Sender: FDA-Public Use
  Company Number: US-JNJFOC-20130516760

PATIENT
  Age: 78 Year
  Sex: Female
  Weight: 86.18 kg

DRUGS (13)
  1. DOXORUBICIN HYDROCHLORIDE (DOXIL) [Suspect]
     Indication: OVARIAN CANCER
     Route: 042
     Dates: start: 20130122, end: 20130521
  2. CARBOPLATIN [Suspect]
     Indication: OVARIAN CANCER
     Route: 065
     Dates: start: 20130122, end: 20130521
  3. ALOXI [Concomitant]
     Indication: NAUSEA
     Route: 065
  4. CALCIUM [Concomitant]
     Route: 065
  5. MVI [Concomitant]
     Route: 065
  6. SIMVASTATIN [Concomitant]
     Indication: BLOOD CHOLESTEROL
     Route: 065
     Dates: start: 20130520
  7. VITAMIN C [Concomitant]
     Route: 065
  8. LASIX [Concomitant]
     Route: 065
  9. POTASSIUM CHLORIDE [Concomitant]
     Route: 065
  10. VITAMIN B6 [Concomitant]
     Indication: PALMAR-PLANTAR ERYTHRODYSAESTHESIA SYNDROME
     Route: 065
     Dates: start: 20130521
  11. POLYCARBOPHIL CALCIUM [Concomitant]
     Route: 065
  12. LOSARTAN/HYDROCHLOROTHIAZIDE [Concomitant]
     Indication: BLOOD PRESSURE
     Route: 065
     Dates: start: 20130521
  13. MEDROXYPROGESTERONE [Concomitant]
     Indication: HORMONE THERAPY
     Route: 065
     Dates: start: 20130521

REACTIONS (6)
  - Blood creatinine increased [Unknown]
  - Palmar-plantar erythrodysaesthesia syndrome [Unknown]
  - Erythema [Not Recovered/Not Resolved]
  - Pruritus [Recovered/Resolved]
  - Local swelling [Recovered/Resolved]
  - Infusion related reaction [Recovered/Resolved]
